FAERS Safety Report 11532326 (Version 6)
Quarter: 2017Q1

REPORT INFORMATION
  Report Type: Spontaneous
  Country: US (occurrence: US)
  Receive Date: 20150921
  Receipt Date: 20170302
  Transmission Date: 20170428
  Serious: Yes (Other)
  Sender: FDA-Public Use
  Company Number: US-PFIZER INC-2015302314

PATIENT
  Age: 65 Year
  Sex: Female
  Weight: 112.4 kg

DRUGS (6)
  1. IBRANCE [Suspect]
     Active Substance: PALBOCICLIB
     Indication: BREAST CANCER FEMALE
     Dosage: 125 MG, CYCLIC (FOR 21 DAYS 7 DAYS OFF)
     Route: 048
     Dates: start: 20150813
  2. LETROZOLE. [Concomitant]
     Active Substance: LETROZOLE
     Dosage: 2.5 MG, DAILY
     Route: 048
  3. ALBUTEROL. [Concomitant]
     Active Substance: ALBUTEROL
     Dosage: 90 MCG/ACTUATION INH QID
  4. CEPHALEXIN. [Concomitant]
     Active Substance: CEPHALEXIN
     Dosage: 500 MG, 2X/DAY
     Route: 048
  5. JANUVIA [Concomitant]
     Active Substance: SITAGLIPTIN PHOSPHATE
     Dosage: 25 MG, 2X/DAY
     Route: 048
  6. PREDNISONE. [Concomitant]
     Active Substance: PREDNISONE
     Dosage: 20 MG, DAILY
     Route: 048

REACTIONS (12)
  - Neutropenia [Unknown]
  - Abdominal discomfort [Unknown]
  - Red blood cell count decreased [Unknown]
  - Diarrhoea [Unknown]
  - Flatulence [Unknown]
  - Urinary tract infection [Unknown]
  - Fatigue [Unknown]
  - Skin discolouration [Unknown]
  - Decreased appetite [Unknown]
  - Chest pain [Unknown]
  - Depression [Unknown]
  - Dry skin [Unknown]

NARRATIVE: CASE EVENT DATE: 2015
